FAERS Safety Report 5167974-5 (Version None)
Quarter: 2006Q4

REPORT INFORMATION
  Report Type: 
  Country: None (occurrence: None)
  Receive Date: 20061208
  Receipt Date: 20051212
  Transmission Date: 20070319
  Serious: No
  Sender: FDA-Public Use
  Company Number: US-GLAXOSMITHKLINE-A0585491A

PATIENT
  Age: 69 Year
  Sex: Male

DRUGS (5)
  1. AVANDAMET [Suspect]
     Dosage: 1TAB TWICE PER DAY
     Route: 048
     Dates: start: 20050801
  2. STARLIX [Concomitant]
  3. LIPITOR [Concomitant]
  4. QUINAPRIL [Concomitant]
  5. OSCAL [Concomitant]

REACTIONS (2)
  - NAUSEA [None]
  - VOMITING [None]
